FAERS Safety Report 9032270 (Version 2)
Quarter: 2013Q1

REPORT INFORMATION
  Report Type: Report from Study
  Country: US (occurrence: US)
  Receive Date: 20130122
  Receipt Date: 20130206
  Transmission Date: 20140127
  Serious: Yes (Hospitalization)
  Sender: FDA-Public Use
  Company Number: US-JNJFOC-20130109255

PATIENT
  Age: 16 Year
  Sex: Female
  Weight: 41.3 kg

DRUGS (5)
  1. REMICADE [Suspect]
     Indication: CROHN^S DISEASE
     Route: 042
     Dates: start: 20100929, end: 20121218
  2. HUMIRA [Concomitant]
     Dates: start: 20130104
  3. METHOTREXATE [Concomitant]
  4. PREVACID [Concomitant]
  5. FERRLECIT [Concomitant]
     Indication: ANAEMIA

REACTIONS (1)
  - Perirectal abscess [Recovered/Resolved]
